FAERS Safety Report 21777762 (Version 1)
Quarter: 2022Q4

REPORT INFORMATION
  Report Type: Spontaneous
  Country: US (occurrence: US)
  Receive Date: 20221226
  Receipt Date: 20221226
  Transmission Date: 20230112
  Serious: No
  Sender: FDA-Public Use
  Company Number: US-GSKCCFUS-Case-01583311_AE-89448

PATIENT
  Sex: Male

DRUGS (1)
  1. BREO ELLIPTA [Suspect]
     Active Substance: FLUTICASONE FUROATE\VILANTEROL TRIFENATATE
     Indication: Respiratory tract congestion
     Dosage: UNK

REACTIONS (3)
  - Increased bronchial secretion [Unknown]
  - Product prescribing issue [Unknown]
  - Product use in unapproved indication [Unknown]
